FAERS Safety Report 17592608 (Version 1)
Quarter: 2020Q1

REPORT INFORMATION
  Report Type: Spontaneous
  Country: DE (occurrence: DE)
  Receive Date: 20200327
  Receipt Date: 20200327
  Transmission Date: 20200409
  Serious: Yes (Life-Threatening, Hospitalization, Other)
  Sender: FDA-Public Use
  Company Number: DE-ACTELION-A-CH2020-203386

PATIENT
  Age: 32 Year
  Sex: Male

DRUGS (5)
  1. HEPARIN [Suspect]
     Active Substance: HEPARIN SODIUM
     Indication: ANTICOAGULANT THERAPY
     Route: 042
  2. ARGATROBAN. [Concomitant]
     Active Substance: ARGATROBAN
     Indication: ANTICOAGULANT THERAPY
  3. BOSENTAN. [Suspect]
     Active Substance: BOSENTAN
     Indication: PULMONARY HYPERTENSION
     Route: 048
  4. SILDENAFIL. [Concomitant]
     Active Substance: SILDENAFIL
  5. ILOPROST. [Concomitant]
     Active Substance: ILOPROST
     Route: 042

REACTIONS (17)
  - Inflammatory marker increased [Unknown]
  - Pneumonia bacterial [Unknown]
  - Transfusion [Unknown]
  - Congenital arterial malformation [Unknown]
  - Bicytopenia [Unknown]
  - Dyspnoea [Unknown]
  - Thrombosis [Unknown]
  - Atelectasis [Unknown]
  - Lung infiltration [Unknown]
  - Pulmonary alveolar haemorrhage [Unknown]
  - Haemostasis [Unknown]
  - Staphylococcal bacteraemia [Unknown]
  - Bronchial obstruction [Unknown]
  - Heparin-induced thrombocytopenia [Unknown]
  - Rash [Unknown]
  - Acute respiratory failure [Unknown]
  - Haemoptysis [Unknown]
